FAERS Safety Report 24359180 (Version 2)
Quarter: 2024Q4

REPORT INFORMATION
  Report Type: Spontaneous
  Country: CH (occurrence: CH)
  Receive Date: 20240924
  Receipt Date: 20241030
  Transmission Date: 20250115
  Serious: Yes (Death, Other)
  Sender: MERCK
  Company Number: CH-009507513-2409CHE007862

PATIENT
  Sex: Male

DRUGS (6)
  1. TEMODAL [Suspect]
     Active Substance: TEMOZOLOMIDE
     Indication: Metastatic malignant melanoma
     Dosage: 150 MILLIGRAM/SQ. METER, ON DAYS 1 TO 5 (CYCLICAL)
     Route: 048
     Dates: start: 20240104, end: 20240108
  2. ONDANSETRON [Concomitant]
     Active Substance: ONDANSETRON
     Dosage: 8 MILLIGRAM, DAY 1 TO 5
  3. PREDNISONE [Concomitant]
     Active Substance: PREDNISONE
     Dosage: 7.5 MILLIGRAM, QD
  4. EUTHYROX [Concomitant]
     Active Substance: LEVOTHYROXINE SODIUM
     Dosage: 75 MICROGRAM
  5. KEPPRA [Concomitant]
     Active Substance: LEVETIRACETAM
     Dosage: 2 UNITS
  6. DEXAMETHASONE [Concomitant]
     Active Substance: DEXAMETHASONE
     Dosage: 6 MILLIGRAM

REACTIONS (2)
  - Metastatic malignant melanoma [Fatal]
  - Off label use [Unknown]

NARRATIVE: CASE EVENT DATE: 20240104
